FAERS Safety Report 8296154-X (Version None)
Quarter: 2012Q2

REPORT INFORMATION
  Report Type: 
  Country: None (occurrence: None)
  Receive Date: 20120418
  Receipt Date: 20120413
  Transmission Date: 20120825
  Serious: Yes (Hospitalization)
  Sender: FDA-Public Use
  Company Number: CN-GLAXOSMITHKLINE-B0796057A

PATIENT
  Age: 9 Year
  Sex: Male

DRUGS (2)
  1. LAMICTAL [Suspect]
     Indication: EPILEPSY
     Dosage: 6.25MG PER DAY
     Route: 048
     Dates: start: 20120324, end: 20120409
  2. VALPROATE SODIUM [Concomitant]
     Indication: EPILEPSY
     Route: 048
     Dates: end: 20120409

REACTIONS (2)
  - RASH ERYTHEMATOUS [None]
  - CYANOSIS [None]
